FAERS Safety Report 5443772-X (Version None)
Quarter: 2007Q3

REPORT INFORMATION
  Report Type: 
  Country: None (occurrence: None)
  Receive Date: 20070731
  Receipt Date: 20070605
  Transmission Date: 20080115
  Serious: No
  Sender: FDA-Public Use
  Company Number: US200706001137

PATIENT
  Age: 60 Year
  Sex: Female

DRUGS (15)
  1. BYETTA [Suspect]
     Indication: TYPE 2 DIABETES MELLITUS
     Dosage: 5 UG, 2/D, SUBCUTANEOUS
     Route: 058
     Dates: start: 20070101, end: 20070301
  2. BYETTA [Suspect]
     Dosage: 10 UG, 2/D, SUBCUTANEOUS
     Route: 058
     Dates: start: 20070301
  3. EXENATIDE PEN, DISPOSABLE DEVICE (EXENATIDE PEN) [Concomitant]
  4. LANTUS [Concomitant]
  5. ACTOS [Concomitant]
  6. METFORMIN HCL [Concomitant]
  7. GLUCOPHAGE [Concomitant]
  8. GLYBURIDE [Concomitant]
  9. SPIRIVA [Concomitant]
  10. CARDIZEM [Concomitant]
  11. DIGOXIN [Concomitant]
  12. CRESTOR [Concomitant]
  13. SPIRONOLACTONE [Concomitant]
  14. TORPOL XL (METOPROLOL SUCCINATE) [Concomitant]
  15. COUMADIN [Concomitant]

REACTIONS (4)
  - BLOOD GLUCOSE INCREASED [None]
  - DRUG EFFECT DECREASED [None]
  - PRODUCTIVE COUGH [None]
  - SINUSITIS [None]
